FAERS Safety Report 5627508-5 (Version None)
Quarter: 2008Q1

REPORT INFORMATION
  Report Type: 
  Country: None (occurrence: None)
  Receive Date: 20080215
  Receipt Date: 20071102
  Transmission Date: 20080703
  Serious: No
  Sender: FDA-Public Use
  Company Number: A0691234A

PATIENT
  Age: 80 Year
  Sex: Female

DRUGS (6)
  1. COREG CR [Suspect]
     Indication: CARDIAC FAILURE
     Route: 048
     Dates: start: 20070601, end: 20070801
  2. DIOVAN [Concomitant]
  3. DIGOXIN [Concomitant]
  4. LEVOXYL [Concomitant]
  5. PERCOCET [Concomitant]
  6. TESSALON [Concomitant]

REACTIONS (1)
  - HYPOTENSION [None]
